FAERS Safety Report 18330117 (Version 2)
Quarter: 2020Q4

REPORT INFORMATION
  Report Type: Spontaneous
  Country: US (occurrence: US)
  Receive Date: 20200930
  Receipt Date: 20201127
  Transmission Date: 20210113
  Serious: No
  Sender: FDA-Public Use
  Company Number: US-PFIZER INC-2020377161

PATIENT
  Age: 31 Year
  Sex: Female
  Weight: 93.88 kg

DRUGS (1)
  1. XELJANZ XR [Suspect]
     Active Substance: TOFACITINIB CITRATE
     Indication: PROCTITIS ULCERATIVE
     Dosage: 22 MG, DAILY
     Route: 048
     Dates: start: 202003, end: 20200929

REACTIONS (1)
  - Diarrhoea [Unknown]
